FAERS Safety Report 4791156-X (Version None)
Quarter: 2005Q4

REPORT INFORMATION
  Report Type: 
  Country: None (occurrence: None)
  Receive Date: 20051005
  Receipt Date: 20050926
  Transmission Date: 20060501
  Serious: Yes (Other)
  Sender: FDA-Public Use
  Company Number: HQWYE687127SEP05

PATIENT
  Age: 31 Year
  Sex: Male

DRUGS (1)
  1. EFFEXOR XR [Suspect]
     Indication: DEPRESSION
     Dosage: 300 MG DAILY (OVERDOSE AMOUNT)
     Route: 048

REACTIONS (8)
  - CONFUSIONAL STATE [None]
  - DEPRESSION [None]
  - DRUG INEFFECTIVE [None]
  - FEELING ABNORMAL [None]
  - FLAT AFFECT [None]
  - INTENTIONAL DRUG MISUSE [None]
  - OVERDOSE [None]
  - SUICIDAL IDEATION [None]
